FAERS Safety Report 13707647 (Version 2)
Quarter: 2017Q3

REPORT INFORMATION
  Report Type: Report from Study
  Country: None (occurrence: US)
  Receive Date: 20170630
  Receipt Date: 20170822
  Transmission Date: 20171127
  Serious: Yes (Hospitalization, Other)
  Sender: FDA-Public Use
  Company Number: US-ABBVIE-16K-163-1588492-00

PATIENT
  Age: 55 Year
  Sex: Male

DRUGS (2)
  1. HUMIRA [Suspect]
     Active Substance: ADALIMUMAB
     Indication: COLITIS ULCERATIVE
     Route: 058
     Dates: start: 20151120
  2. HUMIRA [Suspect]
     Active Substance: ADALIMUMAB
     Indication: PSORIASIS

REACTIONS (6)
  - Suture rupture [Recovering/Resolving]
  - Postoperative hernia [Unknown]
  - Surgery [Recovering/Resolving]
  - Anaemia [Unknown]
  - Pain [Not Recovered/Not Resolved]
  - Colostomy closure [Unknown]

NARRATIVE: CASE EVENT DATE: 2016
